FAERS Safety Report 9454270 (Version 1)
Quarter: 2013Q3

REPORT INFORMATION
  Report Type: Spontaneous
  Country: IT (occurrence: IT)
  Receive Date: 20130812
  Receipt Date: 20130812
  Transmission Date: 20140515
  Serious: Yes (Other)
  Sender: FDA-Public Use
  Company Number: IT-SANOFI-AVENTIS-2013SA078052

PATIENT
  Age: 78 Year
  Sex: Male

DRUGS (9)
  1. DUOPLAVIN [Suspect]
     Indication: CORONARY ARTERIAL STENT INSERTION
     Route: 048
     Dates: start: 20130101, end: 20130629
  2. LANTUS [Suspect]
     Indication: DIABETES MELLITUS
     Route: 058
     Dates: start: 20130101, end: 20130629
  3. HUMALOG [Suspect]
     Indication: DIABETES MELLITUS
     Route: 058
     Dates: start: 20130101, end: 20130629
  4. RAMIPRIL [Concomitant]
     Route: 048
  5. CARVEDILOL [Concomitant]
     Route: 048
  6. ATORVASTATIN [Concomitant]
     Route: 048
  7. PEPTAZOL [Concomitant]
     Route: 048
  8. NORVASC [Concomitant]
     Route: 048
  9. LASIX [Concomitant]

REACTIONS (2)
  - Hypoglycaemia [Recovering/Resolving]
  - Injury [Recovering/Resolving]
